FAERS Safety Report 8123994-X (Version None)
Quarter: 2012Q1

REPORT INFORMATION
  Report Type: 
  Country: None (occurrence: None)
  Receive Date: 20120209
  Receipt Date: 20120201
  Transmission Date: 20120608
  Serious: Yes (Other)
  Sender: FDA-Public Use
  Company Number: DE-JNJFOC-20111209804

PATIENT
  Sex: Female

DRUGS (2)
  1. INH [Suspect]
     Indication: TUBERCULOSIS
     Route: 065
  2. REMICADE [Suspect]
     Indication: INFLAMMATORY BOWEL DISEASE
     Route: 042

REACTIONS (1)
  - NERVOUS SYSTEM DISORDER [None]
